FAERS Safety Report 5061048-X (Version None)
Quarter: 2006Q3

REPORT INFORMATION
  Report Type: 
  Country: None (occurrence: None)
  Receive Date: 20060719
  Receipt Date: 20060719
  Transmission Date: 20061208
  Serious: Yes (Hospitalization)
  Sender: FDA-Public Use
  Company Number: None

PATIENT
  Age: 7 Month
  Sex: Male
  Weight: 9.4 kg

DRUGS (2)
  1. PROMETHAZINE HCL [Suspect]
     Indication: PYREXIA
     Dosage: ONCE TOP
     Route: 061
     Dates: start: 20050825, end: 20050825
  2. PROMETHAZINE HCL [Suspect]
     Indication: VOMITING
     Dosage: ONCE TOP
     Route: 061
     Dates: start: 20050825, end: 20050825

REACTIONS (6)
  - AGGRESSION [None]
  - CONVULSION [None]
  - DEPRESSED LEVEL OF CONSCIOUSNESS [None]
  - DYSTONIA [None]
  - EYE ROLLING [None]
  - MYDRIASIS [None]
